FAERS Safety Report 11587920 (Version 1)
Quarter: 2015Q4

REPORT INFORMATION
  Report Type: Spontaneous
  Country: US (occurrence: US)
  Receive Date: 20151001
  Receipt Date: 20151001
  Transmission Date: 20160304
  Serious: Yes (Other)
  Sender: FDA-Public Use
  Company Number: US-MEDA-2014100053

PATIENT
  Age: 7 Year
  Sex: Female

DRUGS (5)
  1. KEPPRA [Suspect]
     Active Substance: LEVETIRACETAM
     Indication: EPILEPSY
  2. PREDNISONE. [Suspect]
     Active Substance: PREDNISONE
     Indication: EPILEPSY
  3. DEPAKOTE [Suspect]
     Active Substance: DIVALPROEX SODIUM
     Indication: EPILEPSY
  4. FELBATOL [Suspect]
     Active Substance: FELBAMATE
     Indication: EPILEPSY
  5. ONFI [Suspect]
     Active Substance: CLOBAZAM
     Indication: EPILEPSY

REACTIONS (1)
  - Drug ineffective [Unknown]
